FAERS Safety Report 6095884-8 (Version None)
Quarter: 2009Q1

REPORT INFORMATION
  Report Type: 
  Country: None (occurrence: None)
  Receive Date: 20090227
  Receipt Date: 20080708
  Transmission Date: 20090719
  Serious: No
  Sender: FDA-Public Use
  Company Number: A0736466A

PATIENT
  Age: 43 Year
  Sex: Female

DRUGS (7)
  1. LAMICTAL [Suspect]
     Dosage: 25MG PER DAY
     Route: 048
     Dates: start: 20080601
  2. ESTROGENIC SUBSTANCE [Concomitant]
  3. LOPRESSOR [Concomitant]
  4. CRESTOR [Concomitant]
  5. LOTREL [Concomitant]
  6. SYNTHROID [Concomitant]
  7. ZYRTEC [Concomitant]

REACTIONS (3)
  - GASTRITIS EROSIVE [None]
  - NAUSEA [None]
  - VOMITING [None]
